FAERS Safety Report 12957898 (Version 1)
Quarter: 2016Q4

REPORT INFORMATION
  Report Type: Spontaneous
  Country: US (occurrence: US)
  Receive Date: 20161118
  Receipt Date: 20161118
  Transmission Date: 20170207
  Serious: Yes (Other)
  Sender: FDA-Public Use
  Company Number: US-BAUSCH-BL-2016-027935

PATIENT
  Age: 43 Year
  Sex: Male

DRUGS (4)
  1. ACETAZOLAMIDE. [Suspect]
     Active Substance: ACETAZOLAMIDE
     Indication: CYSTOID MACULAR OEDEMA
     Route: 048
  2. ACETAZOLAMIDE. [Suspect]
     Active Substance: ACETAZOLAMIDE
     Indication: RETINITIS PIGMENTOSA
  3. DORZOLAMIDE [Suspect]
     Active Substance: DORZOLAMIDE
     Indication: CYSTOID MACULAR OEDEMA
     Route: 061
  4. DORZOLAMIDE [Suspect]
     Active Substance: DORZOLAMIDE
     Indication: RETINITIS PIGMENTOSA

REACTIONS (1)
  - Therapy non-responder [Unknown]
